FAERS Safety Report 10207280 (Version 1)
Quarter: 2014Q2

REPORT INFORMATION
  Report Type: Spontaneous
  Country: US (occurrence: None)
  Receive Date: 20140527
  Receipt Date: 20140527
  Transmission Date: 20141212
  Serious: No
  Sender: FDA-Public Use
  Company Number: None

PATIENT
  Age: 51 Year
  Sex: Female

DRUGS (3)
  1. ZOCOR [Suspect]
     Dates: start: 2011, end: 20120214
  2. HERBALS [Suspect]
     Dates: start: 201102, end: 201202
  3. MULTIPLE CAM PRODUCTS [Suspect]
     Dates: start: 201102, end: 201202

REACTIONS (4)
  - Blood glucose increased [None]
  - Myopathy [None]
  - Hepatomegaly [None]
  - Hepatic steatosis [None]
